FAERS Safety Report 4863492-X (Version None)
Quarter: 2005Q4

REPORT INFORMATION
  Report Type: 
  Country: None (occurrence: None)
  Receive Date: 20051222
  Receipt Date: 20050307
  Transmission Date: 20060501
  Serious: No
  Sender: FDA-Public Use
  Company Number: US-GLAXOSMITHKLINE-A0548636A

PATIENT
  Sex: Male

DRUGS (5)
  1. FLONASE [Suspect]
     Dosage: 1SPR TWICE PER DAY
     Route: 045
  2. SINGULAIR [Concomitant]
  3. PULMICORT [Concomitant]
  4. HUMIBID DM [Concomitant]
  5. AVALIDE [Concomitant]

REACTIONS (2)
  - CHEST DISCOMFORT [None]
  - NASAL DRYNESS [None]
